FAERS Safety Report 7821695 (Version 4)
Quarter: 2017Q4

REPORT INFORMATION
  Report Type: Spontaneous
  Country: DK (occurrence: DK)
  Receive Date: 20110222
  Receipt Date: 20171017
  Transmission Date: 20180321
  Serious: Yes (Life-Threatening, Hospitalization)
  Sender: FDA-Public Use
  Company Number: DK-PFIZER INC-2009288047

PATIENT
  Age: 62 Year
  Sex: Male

DRUGS (10)
  1. FLUCONAZOLE. [Suspect]
     Active Substance: FLUCONAZOLE
     Indication: PYREXIA
     Dosage: 200 MG, 1X/DAY
     Dates: start: 20080429, end: 20080519
  2. MERONEM [Suspect]
     Active Substance: MEROPENEM
     Indication: PYREXIA
     Dosage: 1000 MG, 3X/DAY
     Route: 042
     Dates: start: 20080511, end: 20080516
  3. LANSOPRAZOLE. [Suspect]
     Active Substance: LANSOPRAZOLE
     Indication: GASTRIC ULCER
     Dosage: 30 MG, 2X/DAY
     Route: 048
     Dates: start: 20080507, end: 20080523
  4. ZINACEF [Concomitant]
     Active Substance: CEFUROXIME SODIUM
     Dosage: 750 MG, 3X/DAY
     Route: 030
     Dates: start: 20080430, end: 20080510
  5. PANTOLOC /01263201/ [Suspect]
     Active Substance: PANTOPRAZOLE SODIUM
     Indication: ABDOMINAL PAIN
     Dosage: 40 MG, 1X/DAY
     Route: 048
     Dates: start: 20080428, end: 20080507
  6. ZINACEF [Concomitant]
     Active Substance: CEFUROXIME SODIUM
     Indication: PYREXIA
     Dosage: 1500 MG, 3X/DAY
     Route: 030
     Dates: start: 20080428, end: 20080430
  7. PANTOLOC /01263201/ [Suspect]
     Active Substance: PANTOPRAZOLE SODIUM
     Dosage: 40 MG, 1X/DAY
     Route: 048
     Dates: start: 20080527, end: 20080530
  8. CIPROFLOXACIN. [Suspect]
     Active Substance: CIPROFLOXACIN
     Indication: PYREXIA
     Dosage: 400 MG, 2X/DAY
     Dates: start: 20080430, end: 20080503
  9. THIAMIN [Concomitant]
     Active Substance: THIAMINE
     Indication: HYPOVITAMINOSIS
     Dosage: 300 MG, 1X/DAY
     Dates: start: 20080428
  10. B-COMBIN ^DAK^ [Concomitant]
     Indication: HYPOVITAMINOSIS
     Dosage: UNK

REACTIONS (4)
  - Toxic epidermal necrolysis [Recovered/Resolved]
  - Tremor [Recovered/Resolved]
  - Paraesthesia [Recovered/Resolved]
  - Pain in extremity [Recovered/Resolved]

NARRATIVE: CASE EVENT DATE: 20080525
